FAERS Safety Report 11070773 (Version 1)
Quarter: 2015Q2

REPORT INFORMATION
  Report Type: Spontaneous
  Country: US (occurrence: US)
  Receive Date: 20150427
  Receipt Date: 20150427
  Transmission Date: 20150821
  Serious: Yes (Other)
  Sender: FDA-Public Use
  Company Number: US-AMGEN-USASP2015036781

PATIENT
  Age: 78 Year
  Sex: Female
  Weight: 54 kg

DRUGS (5)
  1. AFINITOR [Concomitant]
     Active Substance: EVEROLIMUS
     Dosage: UNK
  2. EXEMESTANE. [Concomitant]
     Active Substance: EXEMESTANE
     Dosage: 25 MG, QD
     Route: 048
  3. XGEVA [Suspect]
     Active Substance: DENOSUMAB
     Indication: PRODUCT USED FOR UNKNOWN INDICATION
     Dosage: UNK
     Route: 065
     Dates: end: 201010
  4. FASLODEX [Concomitant]
     Active Substance: FULVESTRANT
     Dosage: UNK
  5. EVEROLIMUS [Concomitant]
     Active Substance: EVEROLIMUS
     Dosage: 10 MG, QD
     Route: 048

REACTIONS (2)
  - Osteonecrosis of jaw [Not Recovered/Not Resolved]
  - Drug effect decreased [Unknown]

NARRATIVE: CASE EVENT DATE: 2014
